FAERS Safety Report 9258101 (Version 1)
Quarter: 2013Q2

REPORT INFORMATION
  Report Type: Spontaneous
  Country: US (occurrence: None)
  Receive Date: 20130424
  Receipt Date: 20130424
  Transmission Date: 20140414
  Serious: No
  Sender: FDA-Public Use
  Company Number: None

PATIENT
  Age: 17 Year
  Sex: Female
  Weight: 51.26 kg

DRUGS (1)
  1. NORGESTIMATE [Suspect]
     Dosage: 1 TAB
     Route: 048
     Dates: start: 20130311, end: 20130415

REACTIONS (1)
  - Nausea [None]
